FAERS Safety Report 4959810-4 (Version None)
Quarter: 2006Q1

REPORT INFORMATION
  Report Type: 
  Country: None (occurrence: None)
  Receive Date: 20060324
  Receipt Date: 20060315
  Transmission Date: 20060701
  Serious: Yes (Hospitalization)
  Sender: FDA-Public Use
  Company Number: HQWYE404420MAR06

PATIENT
  Age: 16 Year
  Sex: Female

DRUGS (8)
  1. TACROLIMUS,       CONTROL FOR SIROLIMUS [Suspect]
     Indication: IMMUNOSUPPRESSANT DRUG THERAPY
     Dosage: ORAL; SEE IMAGE
     Route: 048
     Dates: start: 20031105, end: 20040115
  2. TACROLIMUS,       CONTROL FOR SIROLIMUS [Suspect]
     Indication: PROPHYLAXIS AGAINST TRANSPLANT REJECTION
     Dosage: ORAL; SEE IMAGE
     Route: 048
     Dates: start: 20031105, end: 20040115
  3. TACROLIMUS,       CONTROL FOR SIROLIMUS [Suspect]
     Indication: IMMUNOSUPPRESSANT DRUG THERAPY
     Dosage: ORAL; SEE IMAGE
     Route: 048
     Dates: start: 20040116, end: 20040407
  4. TACROLIMUS,       CONTROL FOR SIROLIMUS [Suspect]
     Indication: PROPHYLAXIS AGAINST TRANSPLANT REJECTION
     Dosage: ORAL; SEE IMAGE
     Route: 048
     Dates: start: 20040116, end: 20040407
  5. TACROLIMUS,       CONTROL FOR SIROLIMUS [Suspect]
     Indication: IMMUNOSUPPRESSANT DRUG THERAPY
     Dosage: ORAL; SEE IMAGE
     Route: 048
     Dates: start: 20040408
  6. TACROLIMUS,       CONTROL FOR SIROLIMUS [Suspect]
     Indication: PROPHYLAXIS AGAINST TRANSPLANT REJECTION
     Dosage: ORAL; SEE IMAGE
     Route: 048
     Dates: start: 20040408
  7. MYCOPHENOLATE MOFETIL [Concomitant]
  8. VERAPAMIL [Concomitant]

REACTIONS (1)
  - KIDNEY TRANSPLANT REJECTION [None]
